FAERS Safety Report 8070260-7 (Version None)
Quarter: 2012Q1

REPORT INFORMATION
  Report Type: 
  Country: None (occurrence: None)
  Receive Date: 20120125
  Receipt Date: 20120119
  Transmission Date: 20120608
  Serious: Yes (Other)
  Sender: FDA-Public Use
  Company Number: US-SANOFI-AVENTIS-2012SA004364

PATIENT
  Sex: Female

DRUGS (3)
  1. GLYBURIDE [Concomitant]
  2. METFORMIN HYDROCHLORIDE [Concomitant]
  3. LANTUS [Suspect]
     Dosage: DOSE:10 UNIT(S)
     Route: 058

REACTIONS (1)
  - BLINDNESS [None]
